FAERS Safety Report 17825519 (Version 2)
Quarter: 2020Q2

REPORT INFORMATION
  Report Type: Spontaneous
  Country: IT (occurrence: IT)
  Receive Date: 20200526
  Receipt Date: 20200623
  Transmission Date: 20200714
  Serious: Yes (Life-Threatening, Other)
  Sender: FDA-Public Use
  Company Number: IT-PFIZER INC-2020205614

PATIENT
  Age: 16 Year
  Sex: Male
  Weight: 82 kg

DRUGS (5)
  1. KESTINE [Suspect]
     Active Substance: EBASTINE
     Dosage: UNK
     Route: 048
     Dates: start: 20200506, end: 20200506
  2. FLOMAX [MORNIFLUMATE] [Suspect]
     Active Substance: MORNIFLUMATE
     Dosage: UNK
     Route: 048
     Dates: start: 20200506, end: 20200506
  3. VALIUM [Suspect]
     Active Substance: DIAZEPAM
     Dosage: 25 MG
     Route: 048
     Dates: start: 20200506, end: 20200506
  4. XANAX [Suspect]
     Active Substance: ALPRAZOLAM
     Dosage: 2.5 MG
     Route: 048
     Dates: start: 20200506, end: 20200506
  5. PARACETAMOL [Suspect]
     Active Substance: ACETAMINOPHEN
     Dosage: 6 G
     Route: 048
     Dates: start: 20200506, end: 20200506

REACTIONS (6)
  - Sedation [Recovered/Resolved]
  - Off label use [Unknown]
  - Respiratory depression [Recovered/Resolved]
  - Drug abuse [Recovered/Resolved]
  - Product use issue [Unknown]
  - Analgesic drug level increased [Unknown]

NARRATIVE: CASE EVENT DATE: 20200506
